FAERS Safety Report 21549442 (Version 1)
Quarter: 2022Q4

REPORT INFORMATION
  Report Type: Spontaneous
  Country: EG (occurrence: None)
  Receive Date: 20221103
  Receipt Date: 20221103
  Transmission Date: 20230113
  Serious: Yes (Other)
  Sender: FDA-Public Use
  Company Number: EG-Hikma Pharmaceuticals-EG-H14001-22-02762

PATIENT
  Age: 45 Year
  Sex: Female

DRUGS (1)
  1. DOXORUBICIN [Suspect]
     Active Substance: DOXORUBICIN
     Indication: Breast cancer
     Route: 041
     Dates: start: 20210906

REACTIONS (5)
  - Dyspnoea [Recovering/Resolving]
  - Cough [Recovering/Resolving]
  - Hypersensitivity [Recovering/Resolving]
  - Vomiting [Recovering/Resolving]
  - Erythema [Recovering/Resolving]

NARRATIVE: CASE EVENT DATE: 20210906
